FAERS Safety Report 12986221 (Version 2)
Quarter: 2017Q1

REPORT INFORMATION
  Report Type: Other
  Country: CA (occurrence: CA)
  Receive Date: 20161130
  Receipt Date: 20170105
  Transmission Date: 20170428
  Serious: Yes (Other)
  Sender: FDA-Public Use
  Company Number: CA-APOTEX-2016AP014883

PATIENT
  Sex: Female

DRUGS (7)
  1. METAMFETAMINE HYDROCHLORIDE [Suspect]
     Active Substance: METHAMPHETAMINE HYDROCHLORIDE
     Indication: PRODUCT USED FOR UNKNOWN INDICATION
     Route: 065
  2. APO-OXYCODONE CR [Suspect]
     Active Substance: OXYCODONE HYDROCHLORIDE
     Dosage: UNK
     Route: 045
  3. MARIJUANA [Suspect]
     Active Substance: CANNABIS SATIVA SUBSP. INDICA TOP
     Indication: PRODUCT USED FOR UNKNOWN INDICATION
     Route: 065
  4. LYSERGIDE [Suspect]
     Active Substance: LYSERGIDE
     Indication: PRODUCT USED FOR UNKNOWN INDICATION
     Route: 042
  5. APO-OXYCODONE CR [Suspect]
     Active Substance: OXYCODONE HYDROCHLORIDE
     Indication: PRODUCT USED FOR UNKNOWN INDICATION
     Route: 042
  6. APO-FENTANYL MATRIX [Suspect]
     Active Substance: FENTANYL
     Indication: PRODUCT USED FOR UNKNOWN INDICATION
     Route: 042
  7. COCAINE [Suspect]
     Active Substance: COCAINE
     Indication: PRODUCT USED FOR UNKNOWN INDICATION
     Route: 065

REACTIONS (8)
  - Malaise [Recovered/Resolved]
  - Euphoric mood [Recovered/Resolved]
  - Drug tolerance [Recovered/Resolved]
  - Overdose [Recovered/Resolved]
  - Substance dependence [Recovered/Resolved]
  - Substance abuse [Recovered/Resolved]
  - Loss of consciousness [Recovered/Resolved]
  - Drug withdrawal syndrome [Recovered/Resolved]
